FAERS Safety Report 10232376 (Version 2)
Quarter: 2014Q2

REPORT INFORMATION
  Report Type: Report from Study
  Country: CA (occurrence: CA)
  Receive Date: 20140612
  Receipt Date: 20140612
  Transmission Date: 20141212
  Serious: Yes (Other)
  Sender: FDA-Public Use
  Company Number: CA-ROCHE-1399043

PATIENT
  Sex: Male

DRUGS (9)
  1. ACTEMRA [Suspect]
     Indication: RHEUMATOID ARTHRITIS
     Route: 042
     Dates: start: 20140116, end: 20140410
  2. PREDNISONE [Concomitant]
  3. LEFLUNOMIDE [Concomitant]
  4. PHENYTOIN [Concomitant]
  5. DILANTIN [Concomitant]
  6. VALPROIC ACID [Concomitant]
  7. FOSAMAX [Concomitant]
  8. IMOVANE [Concomitant]
  9. RANIBIZUMAB [Concomitant]
     Route: 065

REACTIONS (2)
  - Pneumonia [Unknown]
  - Haemoglobin abnormal [Unknown]
